FAERS Safety Report 14628610 (Version 3)
Quarter: 2018Q2

REPORT INFORMATION
  Report Type: Spontaneous
  Country: FR (occurrence: FR)
  Receive Date: 20180313
  Receipt Date: 20180503
  Transmission Date: 20180711
  Serious: Yes (Hospitalization, Other)
  Sender: FDA-Public Use
  Company Number: FR-SUN PHARMACEUTICAL INDUSTRIES LTD-2018R1-165821

PATIENT
  Age: 60 Year
  Sex: Male
  Weight: 63 kg

DRUGS (20)
  1. ELVORINE [Suspect]
     Active Substance: LEUCOVORIN CALCIUM
     Dosage: 13 TH CYCLE
     Route: 042
     Dates: start: 20170718
  2. 5-FLUOROURACIL [Suspect]
     Active Substance: FLUOROURACIL
     Dosage: FIRST CYCLE ; CYCLICAL
     Route: 041
     Dates: start: 20170116
  3. AVASTIN [Suspect]
     Active Substance: BEVACIZUMAB
     Dosage: 13 TH CYCLE
     Route: 042
     Dates: start: 20170718
  4. IRINOTECAN [Suspect]
     Active Substance: IRINOTECAN
     Dosage: FOURTH CYCLE
     Route: 042
     Dates: start: 20170404
  5. 5-FLUOROURACIL [Suspect]
     Active Substance: FLUOROURACIL
     Indication: COLORECTAL CANCER METASTATIC
     Dosage: FIRST CYCLE ; CYCLICAL
     Route: 040
     Dates: start: 20170116
  6. 5-FLUOROURACIL [Suspect]
     Active Substance: FLUOROURACIL
     Dosage: NINETH CYCLE
     Route: 041
     Dates: start: 20170523
  7. IRINOTECAN [Suspect]
     Active Substance: IRINOTECAN
     Indication: COLORECTAL CANCER METASTATIC
     Dosage: FIRST CYCLE ; CYCLICAL
     Route: 042
     Dates: start: 20170116
  8. 5-FLUOROURACIL [Suspect]
     Active Substance: FLUOROURACIL
     Dosage: FOURTH CYCLE
     Route: 040
     Dates: start: 20170404
  9. OXALIPLATINE [Suspect]
     Active Substance: OXALIPLATIN
     Dosage: FOURTH CYCLE?EIGHT CYCLE 120 MG
     Route: 042
     Dates: start: 20170404, end: 20170502
  10. IRINOTECAN [Suspect]
     Active Substance: IRINOTECAN
     Dosage: 13 TH CYCLE
     Route: 042
     Dates: start: 20170718
  11. ELVORINE [Suspect]
     Active Substance: LEUCOVORIN CALCIUM
     Indication: COLORECTAL CANCER METASTATIC
     Dosage: FIRST CYCLE
     Route: 042
     Dates: start: 20170116
  12. 5-FLUOROURACIL [Suspect]
     Active Substance: FLUOROURACIL
     Dosage: FOURTH CYCLE
     Route: 041
     Dates: start: 20170404
  13. AVASTIN [Suspect]
     Active Substance: BEVACIZUMAB
     Indication: PRODUCT USED FOR UNKNOWN INDICATION
     Dosage: 9TH CYCLE
     Route: 042
     Dates: start: 20170523
  14. AVASTIN [Suspect]
     Active Substance: BEVACIZUMAB
     Dosage: FOURTH CYCLE
     Route: 042
     Dates: start: 20170404
  15. OXALIPLATINE [Suspect]
     Active Substance: OXALIPLATIN
     Indication: COLORECTAL CANCER METASTATIC
     Dosage: FIRST CYCLE ; CYCLICAL
     Route: 042
     Dates: start: 20170116
  16. IRINOTECAN [Suspect]
     Active Substance: IRINOTECAN
     Dosage: NINETH CYCLE
     Route: 042
     Dates: start: 20170523
  17. 5-FLUOROURACIL [Suspect]
     Active Substance: FLUOROURACIL
     Dosage: NINETH CYCLE
     Route: 040
     Dates: start: 20170523
  18. 5-FLUOROURACIL [Suspect]
     Active Substance: FLUOROURACIL
     Dosage: 13 TH CYCLE
     Route: 041
     Dates: start: 20170718
  19. ELVORINE [Suspect]
     Active Substance: LEUCOVORIN CALCIUM
     Dosage: NINETH CYCLE
     Route: 042
     Dates: start: 20170523
  20. 5-FLUOROURACIL [Suspect]
     Active Substance: FLUOROURACIL
     Dosage: 13 TH CYCLE
     Route: 040
     Dates: start: 20170718

REACTIONS (6)
  - Neutropenia [Recovered/Resolved]
  - Intestinal obstruction [Recovered/Resolved]
  - Anal fissure [Unknown]
  - Decreased appetite [Recovered/Resolved]
  - Asthenia [Recovered/Resolved]
  - Epistaxis [Recovered/Resolved]

NARRATIVE: CASE EVENT DATE: 20170117
